FAERS Safety Report 7619263-4 (Version None)
Quarter: 2011Q3

REPORT INFORMATION
  Report Type: 
  Country: None (occurrence: None)
  Receive Date: 20110718
  Receipt Date: 20110707
  Transmission Date: 20111222
  Serious: Yes (Hospitalization)
  Sender: FDA-Public Use
  Company Number: US-ASTRAZENECA-2011SE26746

PATIENT
  Age: 50 Year
  Sex: Female

DRUGS (3)
  1. RABEPRAZOLE SODIUM [Suspect]
  2. NEXIUM [Suspect]
     Route: 048
  3. OMEPRAZOLE [Suspect]

REACTIONS (4)
  - BLOOD CALCIUM DECREASED [None]
  - BACK DISORDER [None]
  - DRUG DOSE OMISSION [None]
  - BLOOD MAGNESIUM DECREASED [None]
